FAERS Safety Report 12648407 (Version 2)
Quarter: 2017Q3

REPORT INFORMATION
  Report Type: Spontaneous
  Country: AR (occurrence: AR)
  Receive Date: 20160812
  Receipt Date: 20170712
  Transmission Date: 20171127
  Serious: Yes (Other)
  Sender: FDA-Public Use
  Company Number: AR-PFIZER INC-2016381071

PATIENT
  Age: 45 Year
  Sex: Male

DRUGS (2)
  1. SUTENT [Suspect]
     Active Substance: SUNITINIB MALATE
     Indication: METASTATIC RENAL CELL CARCINOMA
     Dosage: UNK, DAILY
     Dates: start: 20150909
  2. SUTENT [Suspect]
     Active Substance: SUNITINIB MALATE
     Dosage: UNK, DAILY
     Dates: start: 20150909

REACTIONS (12)
  - Dysphonia [Recovering/Resolving]
  - Fatigue [Recovering/Resolving]
  - Diabetes mellitus [Unknown]
  - Diabetic metabolic decompensation [Recovering/Resolving]
  - Blood pressure abnormal [Recovering/Resolving]
  - Yellow skin [Recovering/Resolving]
  - Ocular icterus [Recovering/Resolving]
  - Skin discolouration [Recovering/Resolving]
  - Nail discolouration [Recovering/Resolving]
  - Vomiting [Recovering/Resolving]
  - Lung disorder [Recovered/Resolved]
  - Thyroid disorder [Recovering/Resolving]

NARRATIVE: CASE EVENT DATE: 201607
